FAERS Safety Report 7610784-7 (Version None)
Quarter: 2011Q3

REPORT INFORMATION
  Report Type: 
  Country: None (occurrence: None)
  Receive Date: 20110715
  Receipt Date: 20110713
  Transmission Date: 20111222
  Serious: Yes (Death, Hospitalization, Other)
  Sender: FDA-Public Use
  Company Number: PHHY2011AU55529

PATIENT
  Sex: Male

DRUGS (9)
  1. CLOZAPINE [Suspect]
     Indication: DELUSION
     Dosage: 400 MG, QD
     Route: 048
     Dates: start: 19951107, end: 20110622
  2. VALPROAT [Concomitant]
     Indication: AFFECTIVE DISORDER
     Dosage: 1 G, BD
     Route: 048
  3. METFORMIN HCL [Concomitant]
     Indication: DIABETES MELLITUS
     Dosage: 1 G, BD
     Route: 048
  4. RAMIPRIL [Concomitant]
     Indication: HYPERTENSION
     Dosage: 7.5 MG,
     Route: 048
  5. CLOZAPINE [Suspect]
     Indication: SCHIZOAFFECTIVE DISORDER
  6. LITHIUM [Concomitant]
     Indication: AFFECTIVE DISORDER
     Dosage: 450 MG MORNING AND 657 MG NOCTE
     Route: 048
  7. GLICLAZIDE SR [Concomitant]
     Indication: DIABETES MELLITUS
     Dosage: 30 MG,
     Route: 048
  8. FLUOXETINE [Concomitant]
     Dosage: 20 MG,
     Route: 048
  9. CLOZAPINE [Suspect]
     Indication: MANIA

REACTIONS (10)
  - SOMNOLENCE [None]
  - DYSPNOEA [None]
  - TOOTH DISORDER [None]
  - DEPRESSION [None]
  - SUICIDE ATTEMPT [None]
  - SYNCOPE [None]
  - CARDIAC ARREST [None]
  - DEATH [None]
  - SCHIZOAFFECTIVE DISORDER [None]
  - MANIA [None]
